FAERS Safety Report 8036923-4 (Version None)
Quarter: 2012Q1

REPORT INFORMATION
  Report Type: 
  Country: None (occurrence: None)
  Receive Date: 20120111
  Receipt Date: 20120104
  Transmission Date: 20120608
  Serious: No
  Sender: FDA-Public Use
  Company Number: US-PFIZER INC-2012003795

PATIENT
  Sex: Male
  Weight: 74.83 kg

DRUGS (7)
  1. ACETYLSALICYLIC ACID [Concomitant]
     Dosage: 81 MG, 1X/DAY
  2. CARVEDILOL [Suspect]
     Indication: HYPERTENSION
     Dosage: 3.25 MG, 2X/DAY
     Dates: start: 20111101
  3. CARVEDILOL [Suspect]
     Dosage: 6.5 MG, 2X/DAY
  4. GLYBURIDE [Concomitant]
     Indication: TYPE 2 DIABETES MELLITUS
     Dosage: 5 MG, 3X/DAY
  5. LIPITOR [Suspect]
     Indication: BLOOD CHOLESTEROL INCREASED
     Dosage: 10 MG, 1X/DAY
     Dates: start: 20111101
  6. ACETAMINOPHEN [Concomitant]
     Indication: HEADACHE
     Dosage: UNK, AS NEEDED
  7. LIPITOR [Suspect]
     Indication: BLOOD TRIGLYCERIDES INCREASED

REACTIONS (7)
  - MUSCLE DISORDER [None]
  - NAUSEA [None]
  - ASTHENIA [None]
  - PAIN [None]
  - PYREXIA [None]
  - FATIGUE [None]
  - DIZZINESS [None]
